FAERS Safety Report 5024295-9 (Version None)
Quarter: 2006Q2

REPORT INFORMATION
  Report Type: 
  Country: None (occurrence: None)
  Receive Date: 20060609
  Receipt Date: 20060609
  Transmission Date: 20061013
  Serious: Yes (Other)
  Sender: FDA-Public Use
  Company Number: None

PATIENT
  Age: 16 Month
  Sex: Male
  Weight: 10.4327 kg

DRUGS (1)
  1. CEFTIN [Suspect]
     Indication: EAR INFECTION
     Dosage: 3/4 TSP TWICE DAILY PO
     Route: 048
     Dates: start: 20060603, end: 20060608

REACTIONS (5)
  - DIARRHOEA [None]
  - INCORRECT DOSE ADMINISTERED [None]
  - INCORRECT DRUG ADMINISTRATION DURATION [None]
  - MEDICATION ERROR [None]
  - WRONG TECHNIQUE IN DRUG USAGE PROCESS [None]
